FAERS Safety Report 4281212-7 (Version None)
Quarter: 2004Q1

REPORT INFORMATION
  Report Type: 
  Country: None (occurrence: None)
  Receive Date: 20040109
  Receipt Date: 20030813
  Transmission Date: 20041129
  Serious: Yes (Hospitalization)
  Sender: FDA-Public Use
  Company Number: US044896

PATIENT
  Age: 48 Year
  Sex: Female
  Weight: 63.2 kg

DRUGS (10)
  1. KINERET [Suspect]
     Indication: RHEUMATOID ARTHRITIS
     Dosage: 100 MG, DAILY, SC
     Route: 058
     Dates: start: 20020401, end: 20030401
  2. ALBUTEROL [Concomitant]
  3. SALMETEROL HYDROXYNAPHTHOATE [Concomitant]
  4. PREDNISONE [Concomitant]
  5. ASPIRIN [Concomitant]
  6. CALCIUM WITH VITAMIN D [Concomitant]
  7. CETIRIZINE HYDROCHLORIDE [Concomitant]
  8. FLUOXETINE HCL [Concomitant]
  9. LISINOPRIL [Concomitant]
  10. SULFASALAZINE [Concomitant]

REACTIONS (1)
  - SINUSITIS [None]
